FAERS Safety Report 10558841 (Version 7)
Quarter: 2016Q4

REPORT INFORMATION
  Report Type: Report from Study
  Country: KR (occurrence: KR)
  Receive Date: 20141031
  Receipt Date: 20161115
  Transmission Date: 20170206
  Serious: Yes (Hospitalization)
  Sender: FDA-Public Use
  Company Number: KR-ROCHE-1481282

PATIENT
  Age: 62 Year
  Sex: Male
  Weight: 45.5 kg

DRUGS (101)
  1. EMEND [Concomitant]
     Active Substance: APREPITANT
     Route: 048
     Dates: start: 20141112, end: 20141113
  2. EMEND [Concomitant]
     Active Substance: APREPITANT
     Route: 048
     Dates: start: 20150313, end: 20150313
  3. EMEND [Concomitant]
     Active Substance: APREPITANT
     Route: 048
     Dates: start: 20150513, end: 20150514
  4. DEXAMETHASONE. [Concomitant]
     Active Substance: DEXAMETHASONE
     Dosage: SELECT IF ONGOING=NO
     Route: 048
     Dates: start: 20150101, end: 20150101
  5. MAGNESIUM SULFATE. [Concomitant]
     Active Substance: MAGNESIUM SULFATE
     Route: 042
     Dates: start: 20150120, end: 20150120
  6. MAGNESIUM SULFATE. [Concomitant]
     Active Substance: MAGNESIUM SULFATE
     Route: 042
     Dates: start: 20150313, end: 20150313
  7. DIFLUCAN [Concomitant]
     Active Substance: FLUCONAZOLE
     Indication: OESOPHAGEAL CANDIDIASIS
     Route: 042
     Dates: start: 20140929, end: 20140929
  8. LIDOCAIN [Concomitant]
     Active Substance: LIDOCAINE
     Indication: STOMATITIS
     Route: 050
     Dates: start: 20140929, end: 20140930
  9. PLUNAZOL [Concomitant]
     Indication: OESOPHAGEAL CANDIDIASIS
     Route: 048
     Dates: start: 20141001, end: 20141007
  10. IRCODON [Concomitant]
     Indication: HEADACHE
     Route: 048
     Dates: start: 20141006
  11. ZANTAC [Concomitant]
     Active Substance: RANITIDINE HYDROCHLORIDE
     Route: 048
     Dates: start: 20141112, end: 20141114
  12. REMERON [Concomitant]
     Active Substance: MIRTAZAPINE
     Indication: COGNITIVE DISORDER
     Route: 048
     Dates: start: 20141101, end: 20141116
  13. PRBC [Concomitant]
     Dosage: DOSE: 3 (OTHER)
     Route: 042
     Dates: start: 20150303, end: 20150303
  14. PRBC [Concomitant]
     Dosage: DOSE: 2 (OTHER)
     Route: 042
     Dates: start: 20150427, end: 20150427
  15. SEROQUEL [Concomitant]
     Active Substance: QUETIAPINE FUMARATE
     Route: 048
     Dates: start: 20150629
  16. LAMINAR G [Concomitant]
     Indication: GASTRITIS
     Route: 048
     Dates: start: 20150123
  17. DEXILANT [Concomitant]
     Active Substance: DEXLANSOPRAZOLE
     Indication: GASTRITIS
     Route: 048
     Dates: start: 20141028
  18. EMEND [Concomitant]
     Active Substance: APREPITANT
     Indication: NAUSEA
     Route: 048
     Dates: start: 20140806
  19. NASEA [Concomitant]
     Active Substance: RAMOSETRON HYDROCHLORIDE
     Route: 042
     Dates: start: 20150512, end: 20150512
  20. DEXAMETHASONE. [Concomitant]
     Active Substance: DEXAMETHASONE
     Dosage: SELECT IF ONGOING=NO
     Route: 048
     Dates: start: 20150120, end: 20150120
  21. DEXAMETHASONE. [Concomitant]
     Active Substance: DEXAMETHASONE
     Dosage: SELECT IF ONGOING=NO
     Route: 048
     Dates: start: 20150407, end: 20150409
  22. DIFLUCAN [Concomitant]
     Active Substance: FLUCONAZOLE
     Indication: OESOPHAGEAL CANDIDIASIS
     Route: 042
     Dates: start: 20140930, end: 20141001
  23. ZANTAC [Concomitant]
     Active Substance: RANITIDINE HYDROCHLORIDE
     Route: 048
     Dates: start: 20150513, end: 20150515
  24. DUPHALAC-EASY [Concomitant]
     Indication: CONSTIPATION
     Route: 048
     Dates: start: 20141102
  25. LEXAPRO [Concomitant]
     Active Substance: ESCITALOPRAM OXALATE
     Route: 048
     Dates: start: 20141231, end: 20150426
  26. PENIRAMIN [Concomitant]
     Dosage: INDICATION: TRANSFUTION ALLERGY REACTION
     Route: 042
     Dates: start: 20150427, end: 20150427
  27. PENIRAMIN [Concomitant]
     Dosage: INDICATION: ALLERGY REACTION 1 AMPULE
     Route: 042
     Dates: start: 20150609, end: 20150609
  28. MAGNESIUM OXIDE. [Concomitant]
     Active Substance: MAGNESIUM OXIDE
     Indication: CONSTIPATION
     Route: 048
     Dates: start: 20150303
  29. LYRICA [Concomitant]
     Active Substance: PREGABALIN
     Indication: NEUROPATHY PERIPHERAL
     Route: 048
     Dates: start: 20150630
  30. EMEND [Concomitant]
     Active Substance: APREPITANT
     Route: 048
     Dates: start: 20150120, end: 20150120
  31. EMEND [Concomitant]
     Active Substance: APREPITANT
     Route: 048
     Dates: start: 20150512, end: 20150512
  32. NASEA [Concomitant]
     Active Substance: RAMOSETRON HYDROCHLORIDE
     Indication: NAUSEA
     Route: 042
     Dates: start: 20140806
  33. GASTER (SOUTH KOREA) [Concomitant]
     Indication: GASTRITIS
     Route: 042
     Dates: start: 20141028, end: 20141028
  34. ZANTAC [Concomitant]
     Active Substance: RANITIDINE HYDROCHLORIDE
     Route: 048
     Dates: start: 20150101, end: 20150103
  35. ZANTAC [Concomitant]
     Active Substance: RANITIDINE HYDROCHLORIDE
     Route: 048
     Dates: start: 20150121, end: 20150123
  36. LEXAPRO [Concomitant]
     Active Substance: ESCITALOPRAM OXALATE
     Route: 048
     Dates: start: 20150427
  37. PENIRAMIN [Concomitant]
     Dosage: INDICATION: TRANSFUTION
     Route: 042
     Dates: start: 20150120, end: 20150120
  38. SEROQUEL [Concomitant]
     Active Substance: QUETIAPINE FUMARATE
     Route: 048
     Dates: start: 20150210, end: 20150426
  39. TRASTUZUMAB [Suspect]
     Active Substance: TRASTUZUMAB
     Dosage: MAINTAINANCE DOSE: 299 MG?MOST RECENT DOSE ON 13/OCT/2014.
     Route: 042
  40. CISPLATIN. [Suspect]
     Active Substance: CISPLATIN
     Indication: HER-2 POSITIVE GASTRIC CANCER
     Dosage: MOST RECENT DOSE ON 13/OCT/2014
     Route: 042
     Dates: start: 20140806
  41. NASEA [Concomitant]
     Active Substance: RAMOSETRON HYDROCHLORIDE
     Route: 042
     Dates: start: 20150406, end: 20150406
  42. DEXAMETHASONE. [Concomitant]
     Active Substance: DEXAMETHASONE
     Indication: NAUSEA
     Route: 042
     Dates: start: 20140406
  43. LASIX [Concomitant]
     Active Substance: FUROSEMIDE
     Route: 042
     Dates: start: 20150406, end: 20150406
  44. MAGNESIUM SULFATE. [Concomitant]
     Active Substance: MAGNESIUM SULFATE
     Route: 042
     Dates: start: 20150406, end: 20150406
  45. MAGNESIUM SULFATE. [Concomitant]
     Active Substance: MAGNESIUM SULFATE
     Route: 042
     Dates: start: 20150512, end: 20150512
  46. WINUF [Concomitant]
     Indication: DECREASED APPETITE
     Route: 042
     Dates: start: 20141029, end: 20141103
  47. ATIVAN [Concomitant]
     Active Substance: LORAZEPAM
     Route: 048
     Dates: start: 20141117, end: 20141230
  48. LEXAPRO [Concomitant]
     Active Substance: ESCITALOPRAM OXALATE
     Indication: COGNITIVE DISORDER
     Route: 048
     Dates: start: 20141117, end: 20141230
  49. SEROQUEL [Concomitant]
     Active Substance: QUETIAPINE FUMARATE
     Route: 048
     Dates: start: 20150427, end: 20150628
  50. ALBUMIN [Concomitant]
     Active Substance: ALBUMIN HUMAN
     Indication: HYPOALBUMINAEMIA
     Route: 042
     Dates: start: 20150727, end: 20150727
  51. TRASTUZUMAB [Suspect]
     Active Substance: TRASTUZUMAB
     Indication: HER-2 POSITIVE GASTRIC CANCER
     Dosage: LOADING DOSE
     Route: 042
     Dates: start: 20140806
  52. EMEND [Concomitant]
     Active Substance: APREPITANT
     Indication: VOMITING
     Route: 048
     Dates: start: 20141014, end: 20141015
  53. EMEND [Concomitant]
     Active Substance: APREPITANT
     Route: 048
     Dates: start: 20150121, end: 20150122
  54. NASEA [Concomitant]
     Active Substance: RAMOSETRON HYDROCHLORIDE
     Route: 042
     Dates: start: 20150313, end: 20150313
  55. DEXAMETHASONE. [Concomitant]
     Active Substance: DEXAMETHASONE
     Dosage: SELECT IF ONGOING=NO
     Route: 042
     Dates: start: 20150313, end: 20150313
  56. DEXAMETHASONE. [Concomitant]
     Active Substance: DEXAMETHASONE
     Dosage: SELECT IF ONGOING=NO
     Route: 048
     Dates: start: 20150314, end: 20150316
  57. DEXAMETHASONE. [Concomitant]
     Active Substance: DEXAMETHASONE
     Dosage: SELECT IF ONGOING=NO
     Route: 048
     Dates: start: 20150406, end: 20150406
  58. DEXAMETHASONE. [Concomitant]
     Active Substance: DEXAMETHASONE
     Dosage: SELECT IF ONGOING=NO
     Route: 048
     Dates: start: 20150513, end: 20150515
  59. MAGNESIUM SULFATE. [Concomitant]
     Active Substance: MAGNESIUM SULFATE
     Indication: ELECTROLYTE IMBALANCE
     Route: 042
     Dates: start: 20140829
  60. ZANTAC [Concomitant]
     Active Substance: RANITIDINE HYDROCHLORIDE
     Route: 048
     Dates: start: 20150314, end: 20150316
  61. PRBC [Concomitant]
     Indication: ANAEMIA
     Route: 042
     Dates: start: 20150120, end: 20150120
  62. SEROQUEL [Concomitant]
     Active Substance: QUETIAPINE FUMARATE
     Route: 048
     Dates: start: 20150427
  63. TARGIN [Concomitant]
     Active Substance: NALOXONE HYDROCHLORIDE\OXYCODONE HYDROCHLORIDE
     Route: 048
     Dates: start: 20141030, end: 20141102
  64. TARGIN [Concomitant]
     Active Substance: NALOXONE HYDROCHLORIDE\OXYCODONE HYDROCHLORIDE
     Dosage: 20/10MG
     Route: 048
     Dates: start: 20141004, end: 20141005
  65. EMEND [Concomitant]
     Active Substance: APREPITANT
     Route: 048
     Dates: start: 20150101, end: 20150102
  66. EMEND [Concomitant]
     Active Substance: APREPITANT
     Route: 048
     Dates: start: 20150314, end: 20150315
  67. MACPERAN [Concomitant]
     Active Substance: METOCLOPRAMIDE HYDROCHLORIDE
     Route: 042
     Dates: start: 20141028, end: 20141029
  68. LASIX [Concomitant]
     Active Substance: FUROSEMIDE
     Route: 042
     Dates: start: 20150120, end: 20150120
  69. LASIX [Concomitant]
     Active Substance: FUROSEMIDE
     Route: 042
     Dates: start: 20150313, end: 20150313
  70. ZANTAC [Concomitant]
     Active Substance: RANITIDINE HYDROCHLORIDE
     Indication: GASTRITIS
     Route: 048
     Dates: start: 20141014, end: 20141016
  71. ZANTAC [Concomitant]
     Active Substance: RANITIDINE HYDROCHLORIDE
     Route: 048
     Dates: start: 20150407, end: 20150409
  72. REMERON [Concomitant]
     Active Substance: MIRTAZAPINE
     Route: 048
     Dates: start: 20141209, end: 20150119
  73. PRBC [Concomitant]
     Dosage: DOSE: 3 (OTHER)
     Route: 042
     Dates: start: 20150609, end: 20150609
  74. PLACEBO [Suspect]
     Active Substance: UNSPECIFIED INGREDIENT
     Indication: HER-2 POSITIVE GASTRIC CANCER
     Dosage: MOST RECENT DOSE ON 13/OCT/2014
     Route: 042
     Dates: start: 20140806
  75. EMEND [Concomitant]
     Active Substance: APREPITANT
     Route: 048
     Dates: start: 20150407, end: 20150408
  76. DEXAMETHASONE. [Concomitant]
     Active Substance: DEXAMETHASONE
     Indication: VOMITING
     Dosage: SELECT IF ONGOING=NO
     Route: 048
     Dates: start: 20141014, end: 20141016
  77. DEXAMETHASONE. [Concomitant]
     Active Substance: DEXAMETHASONE
     Dosage: SELECT IF ONGOING=NO
     Route: 048
     Dates: start: 20150121, end: 20150123
  78. DEXAMETHASONE. [Concomitant]
     Active Substance: DEXAMETHASONE
     Dosage: SELECT IF ONGOING=NO
     Route: 042
     Dates: start: 20150512, end: 20150512
  79. MACPERAN [Concomitant]
     Active Substance: METOCLOPRAMIDE HYDROCHLORIDE
     Indication: NAUSEA
     Route: 048
     Dates: start: 20140830
  80. LASIX [Concomitant]
     Active Substance: FUROSEMIDE
     Route: 042
     Dates: start: 20150512, end: 20150512
  81. ATIVAN [Concomitant]
     Active Substance: LORAZEPAM
     Indication: COGNITIVE DISORDER
     Route: 048
     Dates: start: 20141117, end: 20150119
  82. SEROQUEL [Concomitant]
     Active Substance: QUETIAPINE FUMARATE
     Indication: COGNITIVE DISORDER
     Route: 048
     Dates: start: 20150120, end: 20150209
  83. TARGIN [Concomitant]
     Active Substance: NALOXONE HYDROCHLORIDE\OXYCODONE HYDROCHLORIDE
     Indication: CEREBRAL INFARCTION
     Route: 048
     Dates: start: 20141102
  84. TARGIN [Concomitant]
     Active Substance: NALOXONE HYDROCHLORIDE\OXYCODONE HYDROCHLORIDE
     Dosage: 40/20MG
     Route: 048
     Dates: start: 20141001, end: 20141003
  85. CAPECITABINE. [Suspect]
     Active Substance: CAPECITABINE
     Indication: HER-2 POSITIVE GASTRIC CANCER
     Dosage: MOST RECENT DOSE ON 16/OCT/2014.
     Route: 048
     Dates: start: 20140806, end: 20141016
  86. EMEND [Concomitant]
     Active Substance: APREPITANT
     Route: 048
     Dates: start: 20150406, end: 20150406
  87. NASEA [Concomitant]
     Active Substance: RAMOSETRON HYDROCHLORIDE
     Indication: VOMITING
     Route: 042
     Dates: start: 20150120, end: 20150120
  88. DEXAMETHASONE. [Concomitant]
     Active Substance: DEXAMETHASONE
     Dosage: SELECT IF ONGOING=NO
     Route: 048
     Dates: start: 20141112, end: 20141114
  89. SODIUM BICARBONATE. [Concomitant]
     Active Substance: SODIUM BICARBONATE
     Indication: STOMATITIS
     Route: 050
     Dates: start: 20140904
  90. LASIX [Concomitant]
     Active Substance: FUROSEMIDE
     Indication: HYPERVOLAEMIA
     Route: 042
     Dates: start: 20140829
  91. ULTRACET [Concomitant]
     Active Substance: ACETAMINOPHEN\TRAMADOL HYDROCHLORIDE
     Indication: HEADACHE
     Route: 048
     Dates: start: 20141001, end: 20141026
  92. MORPHINE HCL [Concomitant]
     Active Substance: MORPHINE HYDROCHLORIDE
     Indication: ABDOMINAL PAIN UPPER
     Route: 042
     Dates: start: 20140929, end: 20141001
  93. MORPHINE HCL [Concomitant]
     Active Substance: MORPHINE HYDROCHLORIDE
     Indication: CEREBRAL INFARCTION
     Route: 042
     Dates: start: 20141029, end: 20141103
  94. GASTER (SOUTH KOREA) [Concomitant]
     Indication: ABDOMINAL PAIN UPPER
     Route: 042
     Dates: start: 20140929, end: 20140930
  95. NYSTATIN. [Concomitant]
     Active Substance: NYSTATIN
     Indication: STOMATITIS
     Route: 050
     Dates: start: 20141001, end: 20141010
  96. ULCERMINE [Concomitant]
     Indication: GASTRITIS
     Route: 048
     Dates: start: 20150120
  97. GINEXIN-F [Concomitant]
     Indication: COGNITIVE DISORDER
     Route: 048
     Dates: start: 20141230, end: 20150119
  98. PENIRAMIN [Concomitant]
     Indication: NAUSEA
     Route: 042
     Dates: start: 20141028, end: 20141029
  99. TARGIN [Concomitant]
     Active Substance: NALOXONE HYDROCHLORIDE\OXYCODONE HYDROCHLORIDE
     Indication: ABDOMINAL PAIN UPPER
     Route: 048
     Dates: start: 20141030, end: 20141102
  100. LAMINAR G [Concomitant]
     Route: 048
     Dates: start: 20141029, end: 20150119
  101. MEGESTROL [Concomitant]
     Active Substance: MEGESTROL
     Route: 048
     Dates: start: 20150702

REACTIONS (1)
  - Cerebral infarction [Not Recovered/Not Resolved]

NARRATIVE: CASE EVENT DATE: 20141026
